FAERS Safety Report 4747099-0 (Version None)
Quarter: 2005Q3

REPORT INFORMATION
  Report Type: 
  Country: None (occurrence: None)
  Receive Date: 20050815
  Receipt Date: 20050801
  Transmission Date: 20060218
  Serious: Yes (Hospitalization)
  Sender: FDA-Public Use
  Company Number: S05-USA-03828-01

PATIENT
  Age: 70 Year
  Sex: Male

DRUGS (5)
  1. NAMENDA [Suspect]
     Indication: DEMENTIA ALZHEIMER'S TYPE
     Dates: start: 20050601, end: 20050701
  2. LEVAQUIN [Suspect]
     Indication: PNEUMONIA
     Dates: start: 20050601, end: 20050701
  3. AUGMENTIN '125' [Suspect]
     Indication: PYREXIA
     Dates: start: 20050701, end: 20050701
  4. AUGMENTIN '125' [Suspect]
     Indication: RESPIRATORY DISORDER
     Dates: start: 20050701, end: 20050701
  5. MULTIPLE MEDICATIONS [Concomitant]

REACTIONS (9)
  - CLOSTRIDIUM COLITIS [None]
  - DELIRIUM [None]
  - DIALYSIS [None]
  - HYPERSENSITIVITY [None]
  - NEPHRITIS INTERSTITIAL [None]
  - PNEUMONIA [None]
  - PYREXIA [None]
  - RENAL FAILURE ACUTE [None]
  - RESPIRATORY DISORDER [None]
